FAERS Safety Report 7628581-5 (Version None)
Quarter: 2011Q3

REPORT INFORMATION
  Report Type: 
  Country: None (occurrence: None)
  Receive Date: 20110721
  Receipt Date: 20110721
  Transmission Date: 20111222
  Serious: Yes (Life-Threatening)
  Sender: FDA-Public Use
  Company Number: None

PATIENT
  Age: 62 Year
  Sex: Male
  Weight: 97.5234 kg

DRUGS (1)
  1. BACTRIM [Suspect]
     Indication: INFECTION
     Dosage: BACTRIM 3 TIMES DAY BY MOUTH
     Route: 048
     Dates: start: 20100907, end: 20101111

REACTIONS (5)
  - LOSS OF CONSCIOUSNESS [None]
  - HYPERHIDROSIS [None]
  - HEART RATE DECREASED [None]
  - PRURITUS [None]
  - BLOOD GLUCOSE INCREASED [None]
